FAERS Safety Report 13727228 (Version 3)
Quarter: 2017Q3

REPORT INFORMATION
  Report Type: Spontaneous
  Country: FR (occurrence: FR)
  Receive Date: 20170707
  Receipt Date: 20170728
  Transmission Date: 20171127
  Serious: Yes (Life-Threatening)
  Sender: FDA-Public Use
  Company Number: FR-INDIVIOR LIMITED-INDV-103020-2017

PATIENT
  Age: 49 Year
  Sex: Male

DRUGS (2)
  1. SUBUTEX [Suspect]
     Active Substance: BUPRENORPHINE HYDROCHLORIDE
     Indication: DRUG USE DISORDER
     Dosage: UNK
     Route: 060
  2. SELINCRO [Suspect]
     Active Substance: NALMEFENE HYDROCHLORIDE DIHYDRATE
     Indication: ALCOHOLISM
     Dosage: 1 DF (18MG), QD
     Route: 048
     Dates: start: 20170606, end: 20170606

REACTIONS (7)
  - Confusional state [Recovering/Resolving]
  - Tachycardia [Recovering/Resolving]
  - Gastrointestinal disorder [Recovering/Resolving]
  - Agitation [Recovering/Resolving]
  - Muscle spasms [Recovering/Resolving]
  - Contraindicated product administered [Recovered/Resolved]
  - Drug withdrawal syndrome [Recovering/Resolving]

NARRATIVE: CASE EVENT DATE: 20170606
